FAERS Safety Report 7303774-5 (Version None)
Quarter: 2011Q1

REPORT INFORMATION
  Report Type: 
  Country: None (occurrence: None)
  Receive Date: 20110221
  Receipt Date: 20110104
  Transmission Date: 20110831
  Serious: Yes (Death, Other)
  Sender: FDA-Public Use
  Company Number: US-AMGEN-USASP2011007810

PATIENT
  Sex: Male

DRUGS (10)
  1. NEUPOGEN [Suspect]
     Indication: PRODUCT USED FOR UNKNOWN INDICATION
  2. PEGINTERFERON [Suspect]
  3. REBETOL [Suspect]
     Dosage: UNK
     Dates: start: 20031223
  4. GABAPENTIN [Concomitant]
  5. REBETRON [Suspect]
  6. PEGASYS [Suspect]
     Dosage: UNK
     Dates: start: 20031227
  7. BUPROPION [Concomitant]
  8. EPOGEN [Suspect]
     Indication: HEPATITIS C
  9. INTRON A [Suspect]
  10. METHADONE [Concomitant]
     Indication: PAIN

REACTIONS (12)
  - ABDOMINAL DISTENSION [None]
  - PNEUMONIA ASPIRATION [None]
  - SCROTAL OEDEMA [None]
  - COLLAPSE OF LUNG [None]
  - SKIN ULCER [None]
  - DIAPHRAGMATIC DISORDER [None]
  - PERITONEAL ADHESIONS [None]
  - PAIN [None]
  - SKIN GRAFT FAILURE [None]
  - PERITONITIS [None]
  - LARGE INTESTINE PERFORATION [None]
  - INTESTINAL DILATATION [None]
